FAERS Safety Report 24158520 (Version 1)
Quarter: 2024Q3

REPORT INFORMATION
  Report Type: Spontaneous
  Country: DE (occurrence: DE)
  Receive Date: 20240731
  Receipt Date: 20240731
  Transmission Date: 20241016
  Serious: Yes (Other)
  Sender: TEVA
  Company Number: DE-TEVA-VS-3225856

PATIENT
  Age: 78 Year
  Sex: Female

DRUGS (13)
  1. ATORVASTATIN [Suspect]
     Active Substance: ATORVASTATIN
     Indication: Blood cholesterol increased
     Dosage: RATIOPHARM, 0-0-1
     Route: 048
  2. AMIODARONE [Concomitant]
     Active Substance: AMIODARONE
  3. SULFAMETHOXAZOLE\TRIMETHOPRIM [Concomitant]
     Active Substance: SULFAMETHOXAZOLE\TRIMETHOPRIM
     Indication: Prophylaxis
     Dosage: 3/WEEK
     Dates: start: 202403
  4. LEVOTHYROXINE SODIUM [Concomitant]
     Active Substance: LEVOTHYROXINE SODIUM
  5. CANDESARTAN [Concomitant]
     Active Substance: CANDESARTAN
  6. TORSEMIDE [Concomitant]
     Active Substance: TORSEMIDE
  7. NEBIVOLOL [Concomitant]
     Active Substance: NEBIVOLOL
  8. ALFACALCIDOL [Concomitant]
     Active Substance: ALFACALCIDOL
  9. PANTOPRAZOLE SODIUM [Concomitant]
     Active Substance: PANTOPRAZOLE SODIUM
  10. METAMIZOLE [Concomitant]
     Active Substance: METAMIZOLE
     Dosage: 1-0-1,
  11. SODIUM BICARBONATE [Concomitant]
     Active Substance: SODIUM BICARBONATE
  12. PREDNISOLONE [Concomitant]
     Active Substance: PREDNISOLONE
     Dosage: 1-0-0 (CURRENT, PREVIOUSLY IN HIGHER DOSAGE, BUT THIS WAS NOT KNOWN TO THE REPORTER),
  13. AMIODARONE [Concomitant]
     Active Substance: AMIODARONE
     Dosage: HOLSTEN
     Dates: start: 202401

REACTIONS (10)
  - Loss of consciousness [Unknown]
  - Knee operation [Unknown]
  - Herpes zoster [Not Recovered/Not Resolved]
  - Pain [Not Recovered/Not Resolved]
  - Hepatic enzyme increased [Unknown]
  - Muscular weakness [Not Recovered/Not Resolved]
  - Gait disturbance [Not Recovered/Not Resolved]
  - Tremor [Not Recovered/Not Resolved]
  - Dyspnoea [Unknown]
  - Lipids increased [Unknown]

NARRATIVE: CASE EVENT DATE: 20240101
